FAERS Safety Report 8284133-8 (Version None)
Quarter: 2012Q2

REPORT INFORMATION
  Report Type: 
  Country: None (occurrence: None)
  Receive Date: 20120413
  Receipt Date: 20120118
  Transmission Date: 20120825
  Serious: No
  Sender: FDA-Public Use
  Company Number: US-ASTRAZENECA-2012SE00918

PATIENT
  Sex: Male

DRUGS (2)
  1. NEXIUM [Suspect]
     Indication: PEPTIC ULCER
     Route: 048
  2. NEXIUM IV [Suspect]
     Route: 042

REACTIONS (2)
  - OFF LABEL USE [None]
  - MEMORY IMPAIRMENT [None]
